FAERS Safety Report 5502680-6 (Version None)
Quarter: 2007Q4

REPORT INFORMATION
  Report Type: 
  Country: None (occurrence: None)
  Receive Date: 20071031
  Receipt Date: 20071019
  Transmission Date: 20080405
  Serious: Yes (Other)
  Sender: FDA-Public Use
  Company Number: US-ELI_LILLY_AND_COMPANY-US200710005117

PATIENT
  Sex: Female

DRUGS (6)
  1. FORTEO [Suspect]
     Indication: BODY HEIGHT DECREASED
     Dosage: UNK, UNK
     Dates: start: 20071019, end: 20071019
  2. EVISTA [Suspect]
     Dates: start: 20020101
  3. EVISTA [Suspect]
     Dates: start: 20071023
  4. PREVACID [Concomitant]
  5. CALCIUM W/VITAMIN D NOS [Concomitant]
  6. XALATAN [Concomitant]

REACTIONS (13)
  - ABASIA [None]
  - BODY HEIGHT DECREASED [None]
  - BONE DENSITY DECREASED [None]
  - DISCOMFORT [None]
  - DYSPNOEA [None]
  - HEART RATE IRREGULAR [None]
  - MOBILITY DECREASED [None]
  - MUSCLE CONTRACTIONS INVOLUNTARY [None]
  - MUSCLE RIGIDITY [None]
  - MUSCLE SPASMS [None]
  - MYALGIA [None]
  - SPINAL FRACTURE [None]
  - TREMOR [None]
